FAERS Safety Report 5470130-4 (Version None)
Quarter: 2007Q3

REPORT INFORMATION
  Report Type: 
  Country: None (occurrence: None)
  Receive Date: 20070924
  Receipt Date: 20070913
  Transmission Date: 20080115
  Serious: Yes (Hospitalization, Other)
  Sender: FDA-Public Use
  Company Number: 236390K07USA

PATIENT
  Age: 43 Year
  Sex: Female
  Weight: 67.586 kg

DRUGS (7)
  1. REBIF [Suspect]
     Indication: MULTIPLE SCLEROSIS
     Dosage: 44 MCG, 3 IN 1 WEEKS, SUBCUTANEOUS
     Route: 058
     Dates: start: 20070321
  2. IBUPROFEN [Concomitant]
  3. BACLOFEN [Concomitant]
  4. KLONOPIN WAFER (CLONAZEPAM) [Concomitant]
  5. MOBIC [Concomitant]
  6. TRIAMATINE (ALL OTHER THERAPEUTIC PRODUCTS) [Concomitant]
  7. WELLBUTRIN XL [Concomitant]

REACTIONS (2)
  - CHOLELITHIASIS [None]
  - INJECTION SITE IRRITATION [None]
